FAERS Safety Report 5493487-7 (Version None)
Quarter: 2007Q4

REPORT INFORMATION
  Report Type: 
  Country: None (occurrence: None)
  Receive Date: 20071023
  Receipt Date: 20071010
  Transmission Date: 20080405
  Serious: Yes (Other)
  Sender: FDA-Public Use
  Company Number: GB-ELI_LILLY_AND_COMPANY-GB200710002808

PATIENT
  Age: 48 Year
  Sex: Male
  Weight: 149 kg

DRUGS (11)
  1. BYETTA [Suspect]
     Indication: DIABETES MELLITUS
     Dosage: 5 UG, UNKNOWN
     Route: 065
     Dates: start: 20070824
  2. BYETTA [Suspect]
     Dosage: 10 UG, UNKNOWN
     Route: 065
  3. AMLODIPINE [Concomitant]
  4. CITALOPRAM HYDROBROMIDE [Concomitant]
  5. ASPIRIN [Concomitant]
  6. METFORMIN [Concomitant]
  7. BISOPROLOL FUMARATE [Concomitant]
  8. ROSUVASTATIN [Concomitant]
  9. OMEPRAZOLE [Concomitant]
  10. BEZAFIBRATE [Concomitant]
  11. XENICAL [Concomitant]

REACTIONS (3)
  - CONSTIPATION [None]
  - NAUSEA [None]
  - RECTAL HAEMORRHAGE [None]
